FAERS Safety Report 8798930 (Version 1)
Quarter: 2012Q4

REPORT INFORMATION
  Report Type: 
  Country: US (occurrence: US)
  Receive Date: 20120920
  Receipt Date: 20120920
  Transmission Date: 20130627
  Serious: Yes (Other)
  Sender: FDA-Public Use
  Company Number: CHPA2012US019843

PATIENT
  Age: 86 Year
  Sex: Female

DRUGS (2)
  1. EX-LAX REG STR CHOCOLATED LAX PCS SEN [Suspect]
     Indication: BOWEL MOVEMENT IRREGULARITY
     Dosage: 2 DF, BID
     Route: 048
     Dates: start: 201204
  2. AMITIZA [Concomitant]
     Dosage: Unk, once a day

REACTIONS (3)
  - Staphylococcal infection [Not Recovered/Not Resolved]
  - Erythema [Not Recovered/Not Resolved]
  - Incorrect drug administration duration [Unknown]
